FAERS Safety Report 24378876 (Version 1)
Quarter: 2024Q3

REPORT INFORMATION
  Report Type: Spontaneous
  Country: US (occurrence: None)
  Receive Date: 20240928
  Receipt Date: 20240928
  Transmission Date: 20241017
  Serious: Yes (Hospitalization)
  Sender: Public
  Company Number: None

PATIENT
  Age: 82 Year
  Sex: Female
  Weight: 91.6 kg

DRUGS (2)
  1. GEMCITABINE HYDROCHLORIDE [Suspect]
     Active Substance: GEMCITABINE HYDROCHLORIDE
     Dates: end: 20230711
  2. PACLITAXEL [Suspect]
     Active Substance: PACLITAXEL
     Dates: end: 20230711

REACTIONS (12)
  - Fall [None]
  - Pelvic fracture [None]
  - Abdominal pain [None]
  - Pain [None]
  - Back pain [None]
  - Nausea [None]
  - Vomiting [None]
  - Productive cough [None]
  - Dysgeusia [None]
  - Hydronephrosis [None]
  - Pancreatic mass [None]
  - Pelvic fracture [None]

NARRATIVE: CASE EVENT DATE: 20230731
